FAERS Safety Report 11254719 (Version 1)
Quarter: 2015Q3

REPORT INFORMATION
  Report Type: Spontaneous
  Country: FR (occurrence: FR)
  Receive Date: 20150709
  Receipt Date: 20150709
  Transmission Date: 20151125
  Serious: Yes (Hospitalization)
  Sender: FDA-Public Use
  Company Number: FR-PFIZER INC-2015223593

PATIENT
  Age: 26 Year
  Sex: Male

DRUGS (3)
  1. PLAQUENIL S [Concomitant]
     Dosage: 200 MG, 3X/DAY
     Dates: start: 20150504, end: 20150509
  2. SALAZOPYRINE [Suspect]
     Active Substance: SULFASALAZINE
     Dosage: 500 MG, 3X/DAY
     Route: 048
     Dates: start: 20150420, end: 20150509
  3. CORTANCYL [Concomitant]
     Active Substance: PREDNISONE
     Dosage: 10 MG, DAILY
     Dates: start: 20150420

REACTIONS (7)
  - Pyrexia [Recovered/Resolved]
  - Rash [Recovered/Resolved]
  - Headache [Recovered/Resolved]
  - Arthralgia [Unknown]
  - Transaminases increased [Recovering/Resolving]
  - Myalgia [Recovered/Resolved]
  - Asthenia [Unknown]

NARRATIVE: CASE EVENT DATE: 20150504
